FAERS Safety Report 10556058 (Version 1)
Quarter: 2014Q4

REPORT INFORMATION
  Report Type: Spontaneous
  Country: GB (occurrence: GB)
  Receive Date: 20141030
  Receipt Date: 20141030
  Transmission Date: 20150529
  Serious: Yes (Life-Threatening)
  Sender: FDA-Public Use
  Company Number: GB-WATSON-2014-23004

PATIENT
  Age: 53 Year
  Sex: Female
  Weight: 68 kg

DRUGS (2)
  1. OMEPRAZOLE. [Concomitant]
     Active Substance: OMEPRAZOLE
     Indication: PRODUCT USED FOR UNKNOWN INDICATION
     Dosage: UNK
     Route: 065
  2. ATRACURIUM (UNKNOWN) [Suspect]
     Active Substance: ATRACURIUM
     Indication: ENDOTRACHEAL INTUBATION
     Dosage: 40 MG, UNK
     Route: 042

REACTIONS (1)
  - Anaphylactic reaction [Recovered/Resolved]

NARRATIVE: CASE EVENT DATE: 20140930
